FAERS Safety Report 8959746 (Version 2)
Quarter: 2012Q4

REPORT INFORMATION
  Report Type: 
  Country: CL (occurrence: CL)
  Receive Date: 20121212
  Receipt Date: 20121217
  Transmission Date: 20130627
  Serious: Yes (Hospitalization, Other)
  Sender: FDA-Public Use
  Company Number: PHHY2012CL113865

PATIENT
  Age: 26 Year
  Sex: Male

DRUGS (1)
  1. LEPONEX / CLOZARIL [Suspect]
     Indication: SCHIZOPHRENIA
     Dosage: 300 mg, QD
     Dates: start: 20070102

REACTIONS (3)
  - Enterovirus infection [Unknown]
  - Abdominal pain [Unknown]
  - Vomiting [Unknown]
